FAERS Safety Report 14032915 (Version 3)
Quarter: 2017Q4

REPORT INFORMATION
  Report Type: Report from Study
  Country: FR (occurrence: FR)
  Receive Date: 20171002
  Receipt Date: 20171109
  Transmission Date: 20180321
  Serious: Yes (Death, Other)
  Sender: FDA-Public Use
  Company Number: FR-GILEAD-2017-0295786

PATIENT
  Age: 57 Year
  Sex: Male
  Weight: 80 kg

DRUGS (2)
  1. SOFOSBUVIR [Suspect]
     Active Substance: SOFOSBUVIR
     Indication: HEPATITIS C
     Dosage: 400 MG, QD
     Route: 065
     Dates: start: 20140318, end: 20140911
  2. RIBAVIRIN. [Suspect]
     Active Substance: RIBAVIRIN
     Indication: HEPATITIS C
     Dosage: 800 MG, QD
     Route: 065
     Dates: start: 20140318, end: 20140911

REACTIONS (1)
  - B-cell lymphoma [Fatal]

NARRATIVE: CASE EVENT DATE: 201605
